FAERS Safety Report 6767983-6 (Version None)
Quarter: 2010Q2

REPORT INFORMATION
  Report Type: 
  Country: None (occurrence: None)
  Receive Date: 20100614
  Receipt Date: 20100609
  Transmission Date: 20101027
  Serious: Yes (Hospitalization)
  Sender: FDA-Public Use
  Company Number: A0863041A

PATIENT
  Age: 59 Year
  Sex: Male
  Weight: 80.9 kg

DRUGS (16)
  1. AVANDIA [Suspect]
     Indication: DIABETES MELLITUS
     Dosage: 8MG PER DAY
     Route: 048
     Dates: start: 20000101, end: 20080101
  2. NORVASC [Concomitant]
  3. ISORDIL [Concomitant]
  4. SYNTHROID [Concomitant]
  5. CRESTOR [Concomitant]
  6. GLUCOPHAGE [Concomitant]
  7. VIOXX [Concomitant]
  8. PAXIL [Concomitant]
  9. ZANTAC [Concomitant]
  10. ULTRAM [Concomitant]
  11. NEURONTIN [Concomitant]
  12. AMBIEN [Concomitant]
  13. LORTAB [Concomitant]
  14. PRANDIN [Concomitant]
  15. LISINOPRIL [Concomitant]
  16. BEXTRA [Concomitant]

REACTIONS (4)
  - ANGINA PECTORIS [None]
  - CORONARY ARTERY OCCLUSION [None]
  - MACULOPATHY [None]
  - MYOCARDIAL INFARCTION [None]
